FAERS Safety Report 26012316 (Version 1)
Quarter: 2025Q4

REPORT INFORMATION
  Report Type: Spontaneous
  Country: GB (occurrence: GB)
  Receive Date: 20251107
  Receipt Date: 20251107
  Transmission Date: 20260118
  Serious: Yes (Other)
  Sender: MSN LABORATORIES PRIVATE LIMITED
  Company Number: GB-MHRA-TPP18440587C11585041YC1761205113180

PATIENT

DRUGS (16)
  1. ATORVASTATIN [Suspect]
     Active Substance: ATORVASTATIN
     Indication: Ill-defined disorder
     Dosage: ...TO LOWER CHOLESTEROL...
     Route: 065
     Dates: start: 20251007
  2. ATORVASTATIN [Suspect]
     Active Substance: ATORVASTATIN
     Indication: Blood cholesterol increased
  3. PREDNISOLONE [Concomitant]
     Active Substance: PREDNISOLONE
     Indication: Ill-defined disorder
     Dosage: ON COMPLETION OF 30MG COURSE,  TAKE FIVE TABLETS (25MG) ONCE A DAY FOR EIGHT WEEKS
     Route: 065
     Dates: start: 20250828, end: 20251023
  4. FLUCLOXACILLIN [Concomitant]
     Active Substance: FLUCLOXACILLIN
     Indication: Ill-defined disorder
     Dosage: TAKE ONE 4 TIMES/DAY
     Route: 065
     Dates: start: 20250806, end: 20250813
  5. NYSTATIN [Concomitant]
     Active Substance: NYSTATIN
     Indication: Ill-defined disorder
     Dosage: USE AS DIRECTED
     Route: 065
     Dates: start: 20251007, end: 20251008
  6. DICLOFENAC DIETHYLAMINE [Concomitant]
     Active Substance: DICLOFENAC DIETHYLAMINE
     Indication: Ill-defined disorder
     Dosage: APPLY 3 TIMES/DAY
     Route: 065
     Dates: start: 20250902, end: 20250916
  7. EZETIMIBE [Concomitant]
     Active Substance: EZETIMIBE
     Indication: Ill-defined disorder
     Dosage: TAKE ONE TABLET ONCE A DAY TO LOWER CHOLESTEROL...
     Route: 065
     Dates: start: 20251022
  8. EZETIMIBE [Concomitant]
     Active Substance: EZETIMIBE
  9. AMLODIPINE [Concomitant]
     Active Substance: AMLODIPINE BESYLATE
     Indication: Ill-defined disorder
     Dosage: TAKE ONE TABLET ONCE A DAY
     Route: 065
     Dates: start: 20241124
  10. MINERAL OIL [Concomitant]
     Active Substance: MINERAL OIL
     Indication: Ill-defined disorder
     Dosage: APPLY TO THE AFFECTED AREA(S) WHEN NECESSARY
     Route: 065
     Dates: start: 20241124
  11. FLUTICASONE FUROATE\VILANTEROL TRIFENATATE [Concomitant]
     Active Substance: FLUTICASONE FUROATE\VILANTEROL TRIFENATATE
     Indication: Ill-defined disorder
     Dosage: INHALE ONE PUFF ONCE A DAY
     Dates: start: 20241124
  12. VENTOLIN [Concomitant]
     Active Substance: ALBUTEROL SULFATE
     Indication: Ill-defined disorder
     Dosage: INHALE TWO PUFFS WHEN NECESSARY
     Dates: start: 20241124
  13. ALENDRONIC ACID [Concomitant]
     Active Substance: ALENDRONIC ACID
     Indication: Ill-defined disorder
     Dosage: TAKE ONE TABLET ONCE A WEEK
     Route: 065
     Dates: start: 20250522
  14. CALCIUM CARBONATE [Concomitant]
     Active Substance: CALCIUM CARBONATE
     Indication: Ill-defined disorder
     Dosage: TAKE ONE TABLET TWICE A DAY
     Route: 065
     Dates: start: 20250522
  15. OMEPRAZOLE [Concomitant]
     Active Substance: OMEPRAZOLE
     Indication: Ill-defined disorder
     Dosage: TAKE ONE CAPSULE ONCE A DAY
     Route: 065
     Dates: start: 20250902
  16. LUMECARE [CARBOMER] [Concomitant]
     Indication: Ill-defined disorder
     Dosage: APPLY ONE DROP INTO THE AFFECTED EYE(S) THREE T...
     Route: 065
     Dates: start: 20250922, end: 20250929

REACTIONS (2)
  - Gastrointestinal disorder [Unknown]
  - Diarrhoea [Recovered/Resolved]
